FAERS Safety Report 10925842 (Version 4)
Quarter: 2015Q2

REPORT INFORMATION
  Report Type: Spontaneous
  Country: US (occurrence: US)
  Receive Date: 20150318
  Receipt Date: 20150409
  Transmission Date: 20150821
  Serious: Yes (Hospitalization)
  Sender: FDA-Public Use
  Company Number: US-UNITED THERAPEUTICS-UNT-2015-002810

PATIENT
  Age: 74 Year
  Sex: Female
  Weight: 90.7 kg

DRUGS (3)
  1. REVATIO [Concomitant]
     Active Substance: SILDENAFIL CITRATE
     Indication: PRODUCT USED FOR UNKNOWN INDICATION
  2. COUMADIN [Concomitant]
     Active Substance: WARFARIN SODIUM
     Indication: PRODUCT USED FOR UNKNOWN INDICATION
  3. REMODULIN [Suspect]
     Active Substance: TREPROSTINIL
     Indication: PULMONARY HYPERTENSION
     Dosage: 0.083 ?G/KG, CONTINUING
     Route: 041
     Dates: start: 20081208

REACTIONS (7)
  - Fracture [Unknown]
  - Upper limb fracture [Unknown]
  - Wrist fracture [Unknown]
  - Urinary tract infection [Unknown]
  - Fall [Unknown]
  - Hip fracture [Unknown]
  - Balance disorder [Unknown]

NARRATIVE: CASE EVENT DATE: 20150303
